FAERS Safety Report 16103560 (Version 1)
Quarter: 2019Q1

REPORT INFORMATION
  Report Type: Spontaneous
  Country: US (occurrence: US)
  Receive Date: 20190322
  Receipt Date: 20190322
  Transmission Date: 20190418
  Serious: No
  Sender: FDA-Public Use
  Company Number: US-SA-2019SA076242

PATIENT
  Age: 54 Year
  Sex: Female
  Weight: 77.11 kg

DRUGS (7)
  1. LOSARTAN. [Concomitant]
     Active Substance: LOSARTAN
     Dosage: 1 TABLET QD
     Route: 048
     Dates: start: 20170130
  2. ASPIRIN [ACETYLSALICYLIC ACID;ASCORBIC ACID] [Concomitant]
     Active Substance: ACETAMINOPHEN\ASCORBIC ACID
     Dosage: 1 TABLET; QD
     Route: 048
     Dates: start: 20170130
  3. BRISDELLE [Concomitant]
     Active Substance: PAROXETINE MESYLATE
     Dosage: 1 CAP, QD
     Route: 048
     Dates: start: 20170130
  4. FABRAZYME [Suspect]
     Active Substance: AGALSIDASE BETA
     Indication: FABRY^S DISEASE
     Dosage: 1.037 MG/KG; EVERY 10 DAYS
     Route: 041
     Dates: start: 20130305
  5. CRESTOR [Concomitant]
     Active Substance: ROSUVASTATIN CALCIUM
     Dosage: 1 TABLET ;QD
     Route: 048
     Dates: start: 20170130
  6. ZOCOR [Concomitant]
     Active Substance: SIMVASTATIN
     Dosage: 1 TABLET, QD
     Route: 048
     Dates: start: 20141001
  7. ALLEGRA [Concomitant]
     Active Substance: FEXOFENADINE HYDROCHLORIDE
     Dosage: 1 TABLET, QD
     Route: 048
     Dates: start: 20141001

REACTIONS (1)
  - Malaise [Unknown]

NARRATIVE: CASE EVENT DATE: 20190314
